FAERS Safety Report 5364655-X (Version None)
Quarter: 2007Q2

REPORT INFORMATION
  Report Type: 
  Country: None (occurrence: None)
  Receive Date: 20070621
  Receipt Date: 20070612
  Transmission Date: 20071010
  Serious: Yes (Other)
  Sender: FDA-Public Use
  Company Number: US-JNJFOC-20070405423

PATIENT
  Sex: Female
  Weight: 75.3 kg

DRUGS (5)
  1. REMICADE [Suspect]
     Indication: CROHN'S DISEASE
     Dosage: WEEK 0 AND WEEK 2 IN 2007
     Route: 042
     Dates: end: 20070201
  2. TPN [Concomitant]
  3. VANCOMYCIN [Concomitant]
  4. PREDNISONE TAB [Concomitant]
  5. IMURAN [Concomitant]

REACTIONS (2)
  - JUGULAR VEIN THROMBOSIS [None]
  - THROMBOPHLEBITIS [None]
